FAERS Safety Report 11789174 (Version 1)
Quarter: 2015Q4

REPORT INFORMATION
  Report Type: Spontaneous
  Country: US (occurrence: US)
  Receive Date: 20151201
  Receipt Date: 20151201
  Transmission Date: 20160305
  Serious: Yes (Other)
  Sender: FDA-Public Use
  Company Number: US-TEVA-612833USA

PATIENT
  Age: 18 Year
  Sex: Female

DRUGS (1)
  1. TOPIRAMATE. [Suspect]
     Active Substance: TOPIRAMATE
     Indication: HEADACHE
     Dosage: 50 MILLIGRAM DAILY;
     Route: 065

REACTIONS (7)
  - Contusion [Unknown]
  - Temperature intolerance [Unknown]
  - Eating disorder [Unknown]
  - Drug effect incomplete [Unknown]
  - Fatigue [Unknown]
  - Sleep disorder [Unknown]
  - Oligomenorrhoea [Unknown]
